FAERS Safety Report 9262342 (Version 2)
Quarter: 2013Q2

REPORT INFORMATION
  Report Type: Spontaneous
  Country: US (occurrence: US)
  Receive Date: 20130430
  Receipt Date: 20130520
  Transmission Date: 20140414
  Serious: Yes (Hospitalization)
  Sender: FDA-Public Use
  Company Number: PHEH2013US008993

PATIENT
  Age: 67 Year
  Sex: Female

DRUGS (9)
  1. DIOVAN [Suspect]
     Indication: HYPERTENSION
     Dosage: 160 MG, QD
     Route: 048
     Dates: start: 20120625
  2. LEVOTHYROXINE [Concomitant]
     Dosage: 25 MG, QD
     Route: 048
  3. NEXIUM [Concomitant]
     Dosage: 40 MG, UNK
     Route: 048
  4. CYMBALTA [Concomitant]
     Dosage: 60 MG, UNK
     Route: 048
  5. HYDROCODONE [Concomitant]
     Dosage: UNK UKN, PRN
  6. TOPROL XL [Concomitant]
     Dosage: 100 MG, UNK
     Route: 048
  7. KLONOPIN [Concomitant]
     Dosage: 1 MG, BID
     Route: 048
  8. VOLTALIN [Concomitant]
     Dosage: 100 MG, QD
  9. E COR [Concomitant]
     Dosage: 20 MG, QD
     Route: 048

REACTIONS (3)
  - Fall [Unknown]
  - Joint injury [Recovering/Resolving]
  - Meniscus injury [Unknown]
